FAERS Safety Report 7412055-0 (Version None)
Quarter: 2011Q2

REPORT INFORMATION
  Report Type: 
  Country: None (occurrence: None)
  Receive Date: 20110408
  Receipt Date: 20110408
  Transmission Date: 20111010
  Serious: Yes (Hospitalization)
  Sender: FDA-Public Use
  Company Number: None

PATIENT
  Age: 57 Year
  Sex: Male
  Weight: 92 kg

DRUGS (1)
  1. MORPHINE [Suspect]
     Dates: start: 20110224

REACTIONS (4)
  - INCORRECT DOSE ADMINISTERED [None]
  - SEDATION [None]
  - URINARY RETENTION [None]
  - HYPOXIA [None]
